FAERS Safety Report 7190863-1 (Version None)
Quarter: 2010Q4

REPORT INFORMATION
  Report Type: 
  Country: None (occurrence: None)
  Receive Date: 20101222
  Receipt Date: 20101222
  Transmission Date: 20110411
  Serious: Yes (Life-Threatening, Hospitalization, Disabling, Other)
  Sender: FDA-Public Use
  Company Number: None

PATIENT
  Sex: Female
  Weight: 79.3795 kg

DRUGS (1)
  1. DARVOCET-N 100 [Suspect]
     Dosage: 100 - 65 TAB ONCE 3X A DAY

REACTIONS (8)
  - CARDIAC DISORDER [None]
  - CARDIAC FAILURE CONGESTIVE [None]
  - CARDIAC MURMUR [None]
  - DIZZINESS [None]
  - GALLBLADDER DISORDER [None]
  - HEART RATE IRREGULAR [None]
  - NO THERAPEUTIC RESPONSE [None]
  - VISION BLURRED [None]
